FAERS Safety Report 16065448 (Version 2)
Quarter: 2019Q1

REPORT INFORMATION
  Report Type: Report from Study
  Country: GR (occurrence: GR)
  Receive Date: 20190313
  Receipt Date: 20190325
  Transmission Date: 20190418
  Serious: Yes (Hospitalization)
  Sender: FDA-Public Use
  Company Number: GR-SAKK-2019SA065298AA

PATIENT
  Age: 89 Year
  Sex: Male

DRUGS (9)
  1. FUROSEMIDE. [Suspect]
     Active Substance: FUROSEMIDE
     Indication: FLUID RETENTION
     Dosage: 0.5 DF, QD
     Route: 048
  2. BIGER [Concomitant]
  3. TRAJENTA [Concomitant]
     Active Substance: LINAGLIPTIN
  4. TARDYFERON [Concomitant]
     Active Substance: FERROUS SULFATE
  5. NORVASC [Concomitant]
     Active Substance: AMLODIPINE BESYLATE
  6. SALOSPIR [Concomitant]
     Active Substance: ASPIRIN
  7. CLOPIDOGREL BISULFATE. [Suspect]
     Active Substance: CLOPIDOGREL BISULFATE
     Indication: ACUTE MYOCARDIAL INFARCTION
     Dosage: 1 DF, QD
     Route: 048
     Dates: start: 20190220
  8. INSULIN GLARGINE [Suspect]
     Active Substance: INSULIN GLARGINE
     Indication: DIABETES MELLITUS
     Dosage: 8 U, 1X
     Route: 058
     Dates: start: 20190306
  9. FINAR [Concomitant]

REACTIONS (3)
  - Blood glucose fluctuation [Unknown]
  - Respiratory tract infection [Unknown]
  - Pyrexia [Unknown]
